FAERS Safety Report 4602573-2 (Version None)
Quarter: 2005Q1

REPORT INFORMATION
  Report Type: 
  Country: None (occurrence: None)
  Receive Date: 20050307
  Receipt Date: 20050222
  Transmission Date: 20050727
  Serious: Yes (Other)
  Sender: FDA-Public Use
  Company Number: 2005035079

PATIENT
  Age: 69 Year
  Sex: Female
  Weight: 63.5036 kg

DRUGS (4)
  1. TIKOSYN [Suspect]
     Indication: ARRHYTHMIA
     Dosage: 250 MCG (125 MCG, 2 IN 1 D), ORAL
     Route: 048
     Dates: start: 20010701
  2. DIAZEPAM [Concomitant]
  3. THYROID TAB [Concomitant]
  4. ACETYLSALICYLIC ACID (ACETYLSALICYCLIC ACID) [Concomitant]

REACTIONS (1)
  - BREAST CANCER FEMALE [None]
